FAERS Safety Report 6580039-0 (Version None)
Quarter: 2010Q1

REPORT INFORMATION
  Report Type: 
  Country: None (occurrence: None)
  Receive Date: 20100212
  Receipt Date: 20091104
  Transmission Date: 20100710
  Serious: Yes (Other)
  Sender: FDA-Public Use
  Company Number: GB-MERCK-1002GBR00018

PATIENT
  Age: 45 Year
  Sex: Male

DRUGS (17)
  1. FUROSEMIDE [Concomitant]
     Route: 065
  2. IBUPROFEN [Concomitant]
     Route: 065
  3. MORPHINE SULFATE [Concomitant]
     Route: 065
  4. PREGABALIN [Concomitant]
     Route: 065
  5. PYRIMETHAMINE [Concomitant]
     Route: 065
  6. RITONAVIR [Suspect]
     Route: 065
  7. TESTOSTERONE [Concomitant]
     Route: 065
  8. VALGANCICLOVIR HYDROCHLORIDE [Concomitant]
     Route: 065
  9. DAPSONE [Concomitant]
     Route: 065
  10. DARUNAVIR [Suspect]
     Route: 048
  11. DOCUSATE SODIUM [Concomitant]
     Route: 065
  12. DOMPERIDONE [Concomitant]
     Route: 065
  13. ETRAVIRINE [Suspect]
     Route: 048
  14. ISENTRESS [Suspect]
     Route: 048
  15. AZITHROMYCIN [Concomitant]
     Route: 065
  16. CALCIUM (UNSPECIFIED) [Concomitant]
     Route: 065
  17. CALCIUM CITRATE AND CHOLECALCIFEROL [Concomitant]
     Route: 065

REACTIONS (2)
  - BLOOD CHOLESTEROL INCREASED [None]
  - WEIGHT INCREASED [None]
